FAERS Safety Report 10556056 (Version 2)
Quarter: 2014Q4

REPORT INFORMATION
  Report Type: Spontaneous
  Country: US (occurrence: US)
  Receive Date: 20141030
  Receipt Date: 20141210
  Transmission Date: 20150529
  Serious: No
  Sender: FDA-Public Use
  Company Number: US-009507513-1410USA001906

PATIENT
  Age: 22 Year
  Sex: Female
  Weight: 86.17 kg

DRUGS (1)
  1. NEXPLANON [Suspect]
     Active Substance: ETONOGESTREL
     Dosage: 1 ROD / EVERY 3 YEARS
     Route: 030
     Dates: start: 20120709, end: 20141022

REACTIONS (8)
  - Mobility decreased [Unknown]
  - Arthralgia [Unknown]
  - Paraesthesia [Unknown]
  - Device deployment issue [Recovered/Resolved]
  - Vein disorder [Unknown]
  - Medical device complication [Recovered/Resolved]
  - Incorrect route of drug administration [Unknown]
  - Hypoaesthesia [Unknown]

NARRATIVE: CASE EVENT DATE: 2012
